FAERS Safety Report 9679155 (Version 2)
Quarter: 2013Q4

REPORT INFORMATION
  Report Type: Report from Study
  Country: RO (occurrence: RO)
  Receive Date: 20131108
  Receipt Date: 20131108
  Transmission Date: 20140711
  Serious: Yes (Hospitalization)
  Sender: FDA-Public Use
  Company Number: RO-ABBVIE-13P-135-1119676-00

PATIENT
  Age: 75 Year
  Sex: Male
  Weight: 70 kg

DRUGS (2)
  1. ZEMPLAR [Suspect]
     Indication: HYPERPARATHYROIDISM SECONDARY
     Dosage: 1MCG X7/WEEK
     Route: 048
     Dates: start: 20101227, end: 20110318
  2. ZEMPLAR [Suspect]
     Dosage: 1MCG X7/WEEK
     Route: 048
     Dates: start: 20110606

REACTIONS (4)
  - Haematuria [Recovered/Resolved]
  - Hypercalcaemia [Unknown]
  - Klebsiella infection [Unknown]
  - Nephrolithiasis [Unknown]
